FAERS Safety Report 13578869 (Version 1)
Quarter: 2017Q2

REPORT INFORMATION
  Report Type: Spontaneous
  Country: US (occurrence: US)
  Receive Date: 20170524
  Receipt Date: 20170524
  Transmission Date: 20170830
  Serious: No
  Sender: FDA-Public Use
  Company Number: US-JAZZ-2017-US-004599

PATIENT
  Sex: Female

DRUGS (37)
  1. STRATTERA [Concomitant]
     Active Substance: ATOMOXETINE HYDROCHLORIDE
  2. BACTRIM [Concomitant]
     Active Substance: SULFAMETHOXAZOLE\TRIMETHOPRIM
  3. DEXTROAMPHETAMINE                  /00016601/ [Concomitant]
     Active Substance: DEXTROAMPHETAMINE
  4. FERROUS SULFATE. [Concomitant]
     Active Substance: FERROUS SULFATE
  5. METHOTREXATE. [Concomitant]
     Active Substance: METHOTREXATE
  6. FLUTICASONE PROPIONATE. [Concomitant]
     Active Substance: FLUTICASONE PROPIONATE
  7. VITAMIN C [Concomitant]
     Active Substance: ASCORBIC ACID
  8. SINGULAIR [Concomitant]
     Active Substance: MONTELUKAST SODIUM
  9. CEFDINIR. [Concomitant]
     Active Substance: CEFDINIR
  10. VITAMIN D                          /00107901/ [Concomitant]
     Active Substance: ERGOCALCIFEROL
  11. AMOXICILLIN. [Concomitant]
     Active Substance: AMOXICILLIN
  12. CLONIDINE HCL [Concomitant]
     Active Substance: CLONIDINE HYDROCHLORIDE
  13. DEXILANT [Concomitant]
     Active Substance: DEXLANSOPRAZOLE
  14. HYDROXYCHLOROQUINE [Concomitant]
     Active Substance: HYDROXYCHLOROQUINE
  15. MEDROXYPROGESTERONE [Concomitant]
     Active Substance: MEDROXYPROGESTERONE
  16. WELLBUTRIN [Concomitant]
     Active Substance: BUPROPION HYDROCHLORIDE
  17. DESONIDE. [Concomitant]
     Active Substance: DESONIDE
  18. ESTRADIOL. [Concomitant]
     Active Substance: ESTRADIOL
  19. SOMA [Concomitant]
     Active Substance: CARISOPRODOL
  20. XYZAL [Concomitant]
     Active Substance: LEVOCETIRIZINE DIHYDROCHLORIDE
  21. XYREM [Suspect]
     Active Substance: SODIUM OXYBATE
     Indication: SOMNOLENCE
     Dosage: 2.25 G, BID
     Route: 048
     Dates: start: 201209, end: 201209
  22. CAPSAICIN. [Suspect]
     Active Substance: CAPSAICIN
     Indication: HERPES ZOSTER
  23. FOLIC ACID. [Concomitant]
     Active Substance: FOLIC ACID
  24. GABAPENTIN. [Concomitant]
     Active Substance: GABAPENTIN
  25. RESTASIS [Concomitant]
     Active Substance: CYCLOSPORINE
  26. SENNA                              /00142201/ [Concomitant]
     Active Substance: SENNA LEAF
  27. XYREM [Suspect]
     Active Substance: SODIUM OXYBATE
     Dosage: DOSE ADJUSTMENTS
     Route: 048
     Dates: start: 201209, end: 201210
  28. NAMENDA [Concomitant]
     Active Substance: MEMANTINE HYDROCHLORIDE
  29. LATUDA [Concomitant]
     Active Substance: LURASIDONE HYDROCHLORIDE
  30. BROMOCRIPTINE [Concomitant]
     Active Substance: BROMOCRIPTINE
  31. FLUOXETINE HCL [Concomitant]
     Active Substance: FLUOXETINE HYDROCHLORIDE
  32. XYREM [Suspect]
     Active Substance: SODIUM OXYBATE
     Dosage: 4.5 G, BID
     Route: 048
     Dates: start: 201210
  33. LEUCOVORIN CALCIUM. [Concomitant]
     Active Substance: LEUCOVORIN CALCIUM
  34. MUCINEX [Concomitant]
     Active Substance: GUAIFENESIN
  35. ALENDRONATE SODIUM. [Concomitant]
     Active Substance: ALENDRONATE SODIUM
  36. TRAZODONE [Concomitant]
     Active Substance: TRAZODONE HYDROCHLORIDE
  37. VIIBRYD [Concomitant]
     Active Substance: VILAZODONE HYDROCHLORIDE

REACTIONS (8)
  - Visual impairment [Not Recovered/Not Resolved]
  - Memory impairment [Unknown]
  - Vulvovaginal dryness [Not Recovered/Not Resolved]
  - Hypoacusis [Not Recovered/Not Resolved]
  - Confusional state [Unknown]
  - Drug ineffective [Unknown]
  - Fatigue [Not Recovered/Not Resolved]
  - Herpes zoster [Not Recovered/Not Resolved]
